FAERS Safety Report 18743222 (Version 2)
Quarter: 2021Q1

REPORT INFORMATION
  Report Type: Report from Study
  Country: MX (occurrence: MX)
  Receive Date: 20210114
  Receipt Date: 20210122
  Transmission Date: 20210419
  Serious: Yes (Death, Other)
  Sender: FDA-Public Use
  Company Number: MX-SEATTLE GENETICS-2020SGN05200

PATIENT
  Sex: Female

DRUGS (1)
  1. BRENTUXIMAB VEDOTIN [Suspect]
     Active Substance: BRENTUXIMAB VEDOTIN
     Indication: HODGKIN^S DISEASE
     Dosage: 96 MILLIGRAM
     Route: 042
     Dates: start: 20201113, end: 20210119

REACTIONS (7)
  - Paraesthesia [Unknown]
  - Death [Fatal]
  - Hodgkin^s disease [Unknown]
  - Pruritus [Unknown]
  - Pharyngeal paraesthesia [Unknown]
  - Paraesthesia ear [Unknown]
  - Throat irritation [Unknown]
